FAERS Safety Report 13611251 (Version 1)
Quarter: 2017Q2

REPORT INFORMATION
  Report Type: Spontaneous
  Country: MY (occurrence: MY)
  Receive Date: 20170605
  Receipt Date: 20170605
  Transmission Date: 20170830
  Serious: Yes (Other)
  Sender: FDA-Public Use
  Company Number: MY-PFIZER INC-2017090303

PATIENT
  Age: 54 Year
  Sex: Male
  Weight: 71 kg

DRUGS (18)
  1. LIPITOR [Suspect]
     Active Substance: ATORVASTATIN CALCIUM
     Dosage: 40 MG, UNK
  2. PLAVIX [Concomitant]
     Active Substance: CLOPIDOGREL BISULFATE
     Dosage: 75 MG, 1X/DAY
  3. RANEXA [Concomitant]
     Active Substance: RANOLAZINE
     Dosage: 375 MG, 2X/DAY
  4. BIO QUINONE Q10 GOLD [Concomitant]
     Dosage: 100 MG, 1X/DAY
  5. CARDIPRIN /00002701/ [Concomitant]
     Dosage: 100 MG, 1X/DAY
  6. CONCOR [Concomitant]
     Active Substance: BISOPROLOL FUMARATE
     Dosage: 1.25 MG, 1X/DAY
  7. GLUCOPHAGE XR [Concomitant]
     Active Substance: METFORMIN HYDROCHLORIDE
     Dosage: 500 MG, 2X/DAY
  8. NEXIUM [Concomitant]
     Active Substance: ESOMEPRAZOLE MAGNESIUM
     Dosage: 40 MG, 1X/DAY
  9. CELEBREX [Concomitant]
     Active Substance: CELECOXIB
     Dosage: 200 MG, 2X/DAY
  10. LIPITOR [Suspect]
     Active Substance: ATORVASTATIN CALCIUM
     Dosage: 20 MG, UNK
  11. VASTAREL [Concomitant]
     Active Substance: TRIMETAZIDINE DIHYDROCHLORIDE
     Dosage: 35 MG, 2X/DAY
  12. GLUCOSAMINE [Concomitant]
     Active Substance: GLUCOSAMINE
     Dosage: 500 MG, 2X/DAY
  13. URAL /00049401/ [Concomitant]
     Dosage: 1/1, 2X/DAY
  14. COVERSYL /00790702/ [Concomitant]
     Active Substance: PERINDOPRIL
     Dosage: 5 MG, 1X/DAY
  15. NEUROBION /00091901/ [Concomitant]
     Active Substance: HYDROXOCOBALAMIN\PYRIDOXINE HYDROCHLORIDE\THIAMINE HYDROCHLORIDE
     Dosage: 1/1, 2X/DAY
  16. LIPITOR [Suspect]
     Active Substance: ATORVASTATIN CALCIUM
     Dosage: 80 MG, UNK
     Dates: start: 2011
  17. PIASCLEDINE /00809501/ [Concomitant]
     Active Substance: AVOCADO OIL\SOYBEAN OIL
     Dosage: 300 MG, 1X/DAY
  18. FOLIC ACID. [Concomitant]
     Active Substance: FOLIC ACID
     Dosage: 5 MG, 1X/DAY

REACTIONS (5)
  - Coronary artery occlusion [Unknown]
  - Memory impairment [Recovering/Resolving]
  - Coronary artery occlusion [Unknown]
  - Vascular stent stenosis [Unknown]
  - Myalgia [Recovering/Resolving]

NARRATIVE: CASE EVENT DATE: 2013
